FAERS Safety Report 15140548 (Version 2)
Quarter: 2021Q3

REPORT INFORMATION
  Report Type: Report from Study
  Country: DE (occurrence: DE)
  Receive Date: 20180713
  Receipt Date: 20210819
  Transmission Date: 20211014
  Serious: Yes (Hospitalization, Other)
  Sender: FDA-Public Use
  Company Number: DE-AUROBINDO-AUR-APL-2017-42569

PATIENT
  Age: 43 Year
  Sex: Female

DRUGS (3)
  1. PANTOPRAZOLE [Suspect]
     Active Substance: PANTOPRAZOLE
     Indication: HYPERTENSION
     Dosage: 40 MG, UNK
     Route: 065
  2. PREGABALIN. [Interacting]
     Active Substance: PREGABALIN
     Indication: HYPERTENSION
     Dosage: 100 MG, UNK
     Route: 065
  3. DULOXETINE. [Interacting]
     Active Substance: DULOXETINE
     Indication: HYPERTENSION
     Dosage: 60 MG, UNK
     Route: 065

REACTIONS (5)
  - Transaminases increased [Unknown]
  - Hepatotoxicity [Unknown]
  - Alanine aminotransferase increased [Unknown]
  - Drug interaction [Unknown]
  - Aspartate aminotransferase increased [Unknown]
